FAERS Safety Report 7244540-9 (Version None)
Quarter: 2011Q1

REPORT INFORMATION
  Report Type: 
  Country: None (occurrence: None)
  Receive Date: 20110125
  Receipt Date: 20110119
  Transmission Date: 20110831
  Serious: Yes (Other)
  Sender: FDA-Public Use
  Company Number: US-PFIZER INC-2011013618

PATIENT
  Sex: Female

DRUGS (3)
  1. LEVOTHYROXINE [Concomitant]
     Dosage: UNK
  2. XALATAN [Suspect]
     Indication: GLAUCOMA
     Dosage: ONE DROP, 1X/DAY. IN EACH EYE, AT BEDTIME
     Dates: start: 20090701
  3. BUPROPION [Concomitant]
     Dosage: UNK

REACTIONS (4)
  - VISION BLURRED [None]
  - EYE DISORDER [None]
  - EYE IRRITATION [None]
  - OCULAR HYPERAEMIA [None]
